FAERS Safety Report 18105350 (Version 1)
Quarter: 2020Q3

REPORT INFORMATION
  Report Type: Spontaneous
  Country: DE (occurrence: DE)
  Receive Date: 20200804
  Receipt Date: 20200804
  Transmission Date: 20201103
  Serious: Yes (Hospitalization)
  Sender: FDA-Public Use
  Company Number: DE-SUN PHARMACEUTICAL INDUSTRIES LTD-2020RR-255514

PATIENT
  Age: 21 Year
  Sex: Male
  Weight: 90 kg

DRUGS (1)
  1. CIPRO BASICS 500MG FILMTABLETTEN [Suspect]
     Active Substance: CIPROFLOXACIN HYDROCHLORIDE
     Indication: EPIDIDYMITIS
     Dosage: 500 MILLIGRAM, BID
     Route: 048
     Dates: start: 20200704, end: 20200711

REACTIONS (10)
  - Somnolence [Unknown]
  - Asthenia [Not Recovered/Not Resolved]
  - Dizziness [Not Recovered/Not Resolved]
  - Somnolence [Not Recovered/Not Resolved]
  - Adverse reaction [Unknown]
  - Vertigo [Not Recovered/Not Resolved]
  - Presyncope [Unknown]
  - Depressed mood [Unknown]
  - Hyperventilation [Unknown]
  - Impaired quality of life [Not Recovered/Not Resolved]

NARRATIVE: CASE EVENT DATE: 202007
